FAERS Safety Report 16247434 (Version 1)
Quarter: 2019Q2

REPORT INFORMATION
  Report Type: Spontaneous
  Country: JP (occurrence: JP)
  Receive Date: 20190428
  Receipt Date: 20190428
  Transmission Date: 20190711
  Serious: Yes (Hospitalization)
  Sender: FDA-Public Use
  Company Number: JP-CONCORDIA PHARMACEUTICALS INC.-E2B_00007958

PATIENT
  Age: 71 Year
  Sex: Male

DRUGS (7)
  1. POLAPREZINC [Concomitant]
     Active Substance: POLAPREZINC
     Indication: ZINC DEFICIENCY
  2. RABEPRAZOLE NA [Concomitant]
     Active Substance: RABEPRAZOLE SODIUM
     Indication: GASTROOESOPHAGEAL REFLUX DISEASE
     Dates: start: 20160906, end: 20160908
  3. POLAPREZINC [Concomitant]
     Active Substance: POLAPREZINC
     Indication: GASTRIC ULCER
     Route: 048
     Dates: start: 20160906, end: 20160908
  4. POLAPREZINC [Concomitant]
     Active Substance: POLAPREZINC
     Indication: TASTE DISORDER
  5. BIO-THREE [Concomitant]
     Active Substance: HERBALS
     Indication: FAECES SOFT
     Route: 048
     Dates: start: 20160906, end: 20160908
  6. BIO-THREE [Concomitant]
     Active Substance: HERBALS
     Indication: DIARRHOEA
  7. ZONISAMIDE. [Suspect]
     Active Substance: ZONISAMIDE
     Indication: ESSENTIAL TREMOR
     Dosage: AFTER BREAKFAST AND DINNER
     Route: 048
     Dates: start: 20160826, end: 20160908

REACTIONS (1)
  - Drug reaction with eosinophilia and systemic symptoms [Recovering/Resolving]

NARRATIVE: CASE EVENT DATE: 20160908
